FAERS Safety Report 9086395 (Version 1)
Quarter: 2013Q1

REPORT INFORMATION
  Report Type: Report from Study
  Country: US (occurrence: US)
  Receive Date: 20130131
  Receipt Date: 20130131
  Transmission Date: 20140127
  Serious: No
  Sender: FDA-Public Use
  Company Number: US-ABBOTT-12P-163-0997769-00

PATIENT
  Age: 44 Year
  Sex: Male

DRUGS (6)
  1. HUMIRA [Suspect]
     Indication: CROHN^S DISEASE
     Dates: start: 201207
  2. UNKNOWN MEDICATION [Concomitant]
     Indication: ARTHRITIS
     Dosage: 2 PILLS DAILY
  3. BENTYL [Concomitant]
     Indication: CROHN^S DISEASE
     Dosage: 3 PILLS TID
  4. BENTYL [Concomitant]
     Indication: MUSCLE SPASMS
     Route: 048
  5. PROTONIX [Concomitant]
     Indication: GASTROOESOPHAGEAL REFLUX DISEASE
  6. CLARITIN [Concomitant]
     Indication: HYPERSENSITIVITY

REACTIONS (4)
  - Pyrexia [Recovering/Resolving]
  - Nausea [Recovering/Resolving]
  - Nasopharyngitis [Recovering/Resolving]
  - Bronchitis [Recovering/Resolving]
